FAERS Safety Report 8954045 (Version 1)
Quarter: 2012Q4

REPORT INFORMATION
  Report Type: Report from Study
  Country: US (occurrence: US)
  Receive Date: 20121207
  Receipt Date: 20121207
  Transmission Date: 20130627
  Serious: Yes (Other)
  Sender: FDA-Public Use
  Company Number: US-BRISTOL-MYERS SQUIBB COMPANY-17162173

PATIENT
  Age: 55 Year
  Sex: Female
  Weight: 79.5 kg

DRUGS (1)
  1. IPILIMUMAB [Suspect]
     Indication: MALIGNANT MELANOMA
     Dosage: Last admin:16Jul12. Ind: 3mg/kg over 90mins, q3wks x 4wks. Main: q12wks on wks 24,36,48,60
     Route: 042
     Dates: start: 20120625

REACTIONS (1)
  - Vomiting [Recovered/Resolved]
